FAERS Safety Report 4620005-5 (Version None)
Quarter: 2005Q1

REPORT INFORMATION
  Report Type: 
  Country: None (occurrence: None)
  Receive Date: 20050321
  Receipt Date: 20050321
  Transmission Date: 20050727
  Serious: Yes (Other)
  Sender: FDA-Public Use
  Company Number: None

PATIENT
  Sex: Male
  Weight: 62.3 kg

DRUGS (1)
  1. CISPLATIN [Suspect]
     Dosage: 100 MG/M2, DAYS 1, 22, AND 43
     Dates: start: 20050131

REACTIONS (5)
  - BLOOD CREATININE INCREASED [None]
  - DIZZINESS [None]
  - FALL [None]
  - FATIGUE [None]
  - SYNCOPE [None]
